FAERS Safety Report 5676420-4 (Version None)
Quarter: 2008Q1

REPORT INFORMATION
  Report Type: 
  Country: None (occurrence: None)
  Receive Date: 20080321
  Receipt Date: 20080310
  Transmission Date: 20080703
  Serious: Yes (Other)
  Sender: FDA-Public Use
  Company Number: ZA-GENENTECH-257874

PATIENT
  Sex: Male

DRUGS (1)
  1. MABTHERA [Suspect]
     Indication: JUVENILE ARTHRITIS
     Dosage: UNK, UNK
     Dates: start: 20080303

REACTIONS (1)
  - SERUM SICKNESS [None]
